FAERS Safety Report 6146425-8 (Version None)
Quarter: 2009Q2

REPORT INFORMATION
  Report Type: 
  Country: None (occurrence: None)
  Receive Date: 20090403
  Receipt Date: 20090403
  Transmission Date: 20091009
  Serious: Yes (Other)
  Sender: FDA-Public Use
  Company Number: None

PATIENT
  Age: 67 Year
  Sex: Female
  Weight: 69.8539 kg

DRUGS (2)
  1. TIMOLOL MALEATE [Suspect]
     Indication: GLAUCOMA
     Dosage: 1 DROP PER EYE AM ONLY
     Dates: start: 20090101, end: 20090201
  2. TIMOLOL MALEATE [Suspect]
     Indication: GLAUCOMA
     Dosage: 1 DROP PER EYE AM ONLY
     Dates: start: 20090201

REACTIONS (3)
  - CONFUSIONAL STATE [None]
  - DIZZINESS [None]
  - DRY EYE [None]
